FAERS Safety Report 17163624 (Version 1)
Quarter: 2019Q4

REPORT INFORMATION
  Report Type: Spontaneous
  Country: SE (occurrence: SE)
  Receive Date: 20191217
  Receipt Date: 20191217
  Transmission Date: 20200122
  Serious: Yes (Hospitalization)
  Sender: FDA-Public Use
  Company Number: SE-TEVA-2019-SE-1152669

PATIENT
  Sex: Female

DRUGS (3)
  1. STESOLID [Suspect]
     Active Substance: DIAZEPAM
     Dosage: 250 MG
     Route: 048
     Dates: start: 20190721, end: 20190721
  2. ATARAX [Suspect]
     Active Substance: HYDROXYZINE HYDROCHLORIDE
     Dosage: 150 MG
     Route: 048
     Dates: start: 20190721, end: 20190721
  3. LERGIGAN COMP. [Suspect]
     Active Substance: CAFFEINE\EPHEDRINE\PROMETHAZINE
     Dosage: 30 DOSAGE FORMS
     Route: 048
     Dates: start: 20190721, end: 20190721

REACTIONS (2)
  - Intentional self-injury [Unknown]
  - Intentional overdose [Unknown]

NARRATIVE: CASE EVENT DATE: 20190721
